FAERS Safety Report 14745396 (Version 4)
Quarter: 2019Q2

REPORT INFORMATION
  Report Type: Report from Study
  Country: US (occurrence: US)
  Receive Date: 20180411
  Receipt Date: 20190417
  Transmission Date: 20190711
  Serious: Yes (Hospitalization, Other)
  Sender: FDA-Public Use
  Company Number: US-AMGEN-USASL2018046476

PATIENT
  Age: 71 Year
  Sex: Female

DRUGS (2)
  1. REPATHA [Suspect]
     Active Substance: EVOLOCUMAB
     Indication: TYPE V HYPERLIPIDAEMIA
     Dosage: 140 MG, Q2WK
     Route: 058
  2. REPATHA [Suspect]
     Active Substance: EVOLOCUMAB
     Indication: ANGINA UNSTABLE

REACTIONS (6)
  - Middle ear effusion [Unknown]
  - Ear discomfort [Unknown]
  - Ear pain [Unknown]
  - Hypersensitivity [Not Recovered/Not Resolved]
  - Diverticulitis [Unknown]
  - Influenza [Not Recovered/Not Resolved]
